FAERS Safety Report 13903818 (Version 2)
Quarter: 2017Q3

REPORT INFORMATION
  Report Type: Report from Study
  Country: US (occurrence: US)
  Receive Date: 20170824
  Receipt Date: 20170908
  Transmission Date: 20171127
  Serious: No
  Sender: FDA-Public Use
  Company Number: US-JAZZ-2017-US-010077

PATIENT
  Age: 61 Year
  Sex: Male

DRUGS (23)
  1. LORTAB [Concomitant]
     Active Substance: ACETAMINOPHEN\HYDROCODONE BITARTRATE
  2. XYREM [Suspect]
     Active Substance: SODIUM OXYBATE
     Dosage: DOSE ADJUSTMENT
     Route: 048
     Dates: start: 200911, end: 201612
  3. PRAZOSIN. [Concomitant]
     Active Substance: PRAZOSIN
  4. LIPITOR [Concomitant]
     Active Substance: ATORVASTATIN CALCIUM
  5. XYREM [Suspect]
     Active Substance: SODIUM OXYBATE
     Dosage: 3 G, QD, SECOND DOSE
     Route: 048
     Dates: start: 201612
  6. ASA [Concomitant]
     Active Substance: ASPIRIN
  7. HYDROCODONE BITARTRATE AND ACETAMINOPHEN [Concomitant]
     Active Substance: ACETAMINOPHEN\HYDROCODONE BITARTRATE
  8. XYREM [Suspect]
     Active Substance: SODIUM OXYBATE
     Dosage: 4.5 G, QD, FIRST DOSE
     Route: 048
     Dates: start: 201612
  9. LOPRESSOR [Concomitant]
     Active Substance: METOPROLOL TARTRATE
  10. KCL [Concomitant]
     Active Substance: POTASSIUM CHLORIDE
  11. PEPCID AC [Concomitant]
     Active Substance: FAMOTIDINE
  12. ISOSORBIDE. [Concomitant]
     Active Substance: ISOSORBIDE
  13. LASIX [Concomitant]
     Active Substance: FUROSEMIDE
  14. ELIQUIS [Concomitant]
     Active Substance: APIXABAN
  15. FOLIC ACID. [Concomitant]
     Active Substance: FOLIC ACID
  16. NORVASC [Concomitant]
     Active Substance: AMLODIPINE BESYLATE
  17. NUVIGIL [Concomitant]
     Active Substance: ARMODAFINIL
  18. SPIRONOLACTONE. [Concomitant]
     Active Substance: SPIRONOLACTONE
  19. CYCLOBENZAPRINE HCL [Concomitant]
     Active Substance: CYCLOBENZAPRINE HYDROCHLORIDE
  20. FUROSEMIDE. [Concomitant]
     Active Substance: FUROSEMIDE
  21. LISINOPRIL. [Concomitant]
     Active Substance: LISINOPRIL
  22. XYREM [Suspect]
     Active Substance: SODIUM OXYBATE
     Indication: NARCOLEPSY
     Dosage: 2.25 G, BID
     Route: 048
     Dates: start: 200910, end: 200911
  23. PERCOCET                           /00446701/ [Concomitant]
     Active Substance: ACETAMINOPHEN\OXYCODONE HYDROCHLORIDE\OXYCODONE TEREPHTHALATE

REACTIONS (3)
  - Muscle spasms [Unknown]
  - Asthma [Unknown]
  - Road traffic accident [Unknown]

NARRATIVE: CASE EVENT DATE: 201702
